FAERS Safety Report 5064535-3 (Version None)
Quarter: 2006Q3

REPORT INFORMATION
  Report Type: 
  Country: None (occurrence: None)
  Receive Date: 20060728
  Receipt Date: 20060721
  Transmission Date: 20061208
  Serious: Yes (Hospitalization)
  Sender: FDA-Public Use
  Company Number: US-ABBOTT-06P-163-0338505-00

PATIENT
  Sex: Female
  Weight: 100 kg

DRUGS (4)
  1. HUMIRA [Suspect]
     Indication: RHEUMATOID ARTHRITIS
     Route: 058
     Dates: start: 20060420
  2. UNSPECIFIED CARDIAC MEDICATIONS [Concomitant]
     Indication: CARDIAC DISORDER
  3. UNSPECIFIED THYROID MEDICATION [Concomitant]
     Indication: HYPOTHYROIDISM
  4. UNSPECIFIED MEDICATIONS [Concomitant]
     Indication: SWELLING

REACTIONS (6)
  - ASTHENIA [None]
  - DIARRHOEA [None]
  - FALL [None]
  - LABORATORY TEST ABNORMAL [None]
  - OEDEMA PERIPHERAL [None]
  - VOMITING [None]
